FAERS Safety Report 5475666-8 (Version None)
Quarter: 2007Q4

REPORT INFORMATION
  Report Type: 
  Country: None (occurrence: None)
  Receive Date: 20071001
  Receipt Date: 20070919
  Transmission Date: 20080405
  Serious: Yes (Hospitalization)
  Sender: FDA-Public Use
  Company Number: 2007BI014632

PATIENT
  Age: 57 Year
  Sex: Female

DRUGS (7)
  1. AVONEX [Suspect]
     Indication: MULTIPLE SCLEROSIS
     Dosage: 30 UG QW IM
     Route: 030
     Dates: start: 20040301
  2. MICARDIS [Concomitant]
  3. SIMVASTATIN [Concomitant]
  4. ZOLOFT [Concomitant]
  5. NIFEDIPINE [Concomitant]
  6. TEGRETOL [Concomitant]
  7. BACLOFEN [Concomitant]

REACTIONS (6)
  - ACCIDENTAL OVERDOSE [None]
  - APNOEIC ATTACK [None]
  - DRUG INEFFECTIVE [None]
  - MENTAL STATUS CHANGES [None]
  - MICROANGIOPATHY [None]
  - TRIGEMINAL NEURALGIA [None]
